FAERS Safety Report 7645421-9 (Version None)
Quarter: 2011Q3

REPORT INFORMATION
  Report Type: 
  Country: None (occurrence: None)
  Receive Date: 20110729
  Receipt Date: 20110713
  Transmission Date: 20111222
  Serious: No
  Sender: FDA-Public Use
  Company Number: US-B.I. PHARMACEUTICALS,INC./RIDGEFIELD-2011-BP-17666BP

PATIENT
  Sex: Male

DRUGS (7)
  1. COUMADIN [Concomitant]
     Indication: ATRIAL FIBRILLATION
     Dates: start: 20070101
  2. COZAAR [Concomitant]
     Indication: HYPERTENSION
     Dates: start: 20060101
  3. DIGOXIN [Concomitant]
     Indication: ATRIAL FIBRILLATION
     Dates: start: 20010101
  4. SPIRIVA [Suspect]
     Indication: CHRONIC OBSTRUCTIVE PULMONARY DISEASE
     Dosage: 18 MCG
     Route: 055
     Dates: start: 20110304
  5. COREG [Concomitant]
     Indication: HYPERTENSION
     Dates: start: 20010101
  6. LASIX [Concomitant]
     Indication: OEDEMA
     Dates: start: 20060101
  7. ALLOPURINOL [Concomitant]
     Indication: GOUT
     Dates: start: 19960101

REACTIONS (5)
  - FATIGUE [None]
  - DRY MOUTH [None]
  - OROPHARYNGEAL PAIN [None]
  - BURNING SENSATION [None]
  - WEIGHT INCREASED [None]
